FAERS Safety Report 8738729 (Version 4)
Quarter: 2012Q4

REPORT INFORMATION
  Report Type: 
  Country: JP (occurrence: JP)
  Receive Date: 20120823
  Receipt Date: 20121004
  Transmission Date: 20130627
  Serious: Yes (Hospitalization, Other)
  Sender: FDA-Public Use
  Company Number: JP-PFIZER INC-2012202667

PATIENT
  Age: 56 Year
  Sex: Male

DRUGS (10)
  1. LYRICA [Suspect]
     Indication: CARPAL TUNNEL SYNDROME
     Dosage: 25 mg, 1x/day
     Route: 048
     Dates: start: 20120818, end: 20120819
  2. SUKARNASE [Concomitant]
     Dosage: UNK
     Route: 048
  3. SENNOSIDES [Concomitant]
     Route: 048
  4. ALOSENN [Concomitant]
     Route: 048
  5. POLYFUL [Concomitant]
     Route: 048
  6. SAIREI-TO [Concomitant]
     Route: 048
  7. DAI-KENCHU-TO [Concomitant]
     Route: 048
  8. MONILAC [Concomitant]
     Route: 048
  9. DOMPERIDONE [Concomitant]
  10. LAXOBERON [Concomitant]
     Route: 048

REACTIONS (4)
  - Syncope [Recovered/Resolved]
  - Fall [Unknown]
  - Subcutaneous haematoma [Recovering/Resolving]
  - Contusion [Unknown]
